FAERS Safety Report 4502200-9 (Version None)
Quarter: 2004Q4

REPORT INFORMATION
  Report Type: 
  Country: None (occurrence: None)
  Receive Date: 20041116
  Receipt Date: 20041110
  Transmission Date: 20050328
  Serious: Yes (Hospitalization)
  Sender: FDA-Public Use
  Company Number: PHBS2004IT15250

PATIENT
  Age: 65 Year
  Sex: Female

DRUGS (2)
  1. GLEEVEC [Suspect]
     Indication: CHRONIC MYELOID LEUKAEMIA
     Dosage: UNK, UNK
     Route: 048
     Dates: start: 20021014, end: 20041014
  2. DILATREND [Concomitant]
     Dosage: 25 MG, QD
     Dates: start: 20020101

REACTIONS (1)
  - LICHEN PLANUS [None]
